FAERS Safety Report 7648161-5 (Version None)
Quarter: 2011Q3

REPORT INFORMATION
  Report Type: 
  Country: None (occurrence: None)
  Receive Date: 20110801
  Receipt Date: 20110726
  Transmission Date: 20111222
  Serious: Yes (Other)
  Sender: FDA-Public Use
  Company Number: US-BAYER-2011-065878

PATIENT
  Age: 90 Year
  Sex: Female
  Weight: 44.444 kg

DRUGS (2)
  1. CITRACAL [Suspect]
  2. CITRACAL PETITES [Suspect]
     Dosage: 2 DF, BID, BOTTLE COUNT 200S
     Route: 048
     Dates: start: 20100101

REACTIONS (1)
  - CHOKING [None]
